FAERS Safety Report 11848865 (Version 2)
Quarter: 2015Q4

REPORT INFORMATION
  Report Type: Spontaneous
  Country: DE (occurrence: DE)
  Receive Date: 20151218
  Receipt Date: 20151230
  Transmission Date: 20160305
  Serious: Yes (Life-Threatening, Hospitalization, Other)
  Sender: FDA-Public Use
  Company Number: DE-BIOVITRUM-2015DE0741

PATIENT
  Age: 77 Year
  Sex: Female
  Weight: 87 kg

DRUGS (14)
  1. KINERET [Suspect]
     Active Substance: ANAKINRA
     Dosage: 100MG EVERY TWO/THREE DAYS
     Route: 058
     Dates: start: 20100413
  2. ASTONIN H [Concomitant]
     Indication: HYPERKALAEMIA
     Route: 048
     Dates: start: 2010
  3. NEPHOTRANS [Concomitant]
     Indication: METABOLIC ACIDOSIS
     Route: 048
     Dates: start: 2005
  4. KINERET [Suspect]
     Active Substance: ANAKINRA
     Indication: CRYOPYRIN ASSOCIATED PERIODIC SYNDROME
     Dosage: 100MG EVERY TWO/THREE DAYS
     Route: 058
     Dates: start: 200709, end: 200909
  5. PREDNIHEXAL [Concomitant]
     Active Substance: PREDNISOLONE ACETATE
     Indication: MYALGIA
     Route: 048
     Dates: start: 201508
  6. TRIMIPRAMINE [Concomitant]
     Active Substance: TRIMIPRAMINE
     Indication: DEPRESSION
     Route: 048
     Dates: start: 2009
  7. MARCUMAR [Concomitant]
     Active Substance: PHENPROCOUMON
     Indication: ARRHYTHMIA
     Route: 048
     Dates: start: 201503, end: 201506
  8. AMLODIPINE [Concomitant]
     Active Substance: AMLODIPINE BESYLATE
     Indication: HYPERTENSION
     Route: 048
     Dates: start: 2008
  9. SIMVAHEXAL [Concomitant]
     Active Substance: SIMVASTATIN
     Indication: HYPERLIPIDAEMIA
     Route: 048
     Dates: start: 2008
  10. EUTHYROX [Concomitant]
     Active Substance: LEVOTHYROXINE SODIUM
     Indication: HYPOTHYROIDISM
     Route: 048
     Dates: start: 2005
  11. TORASEMID [Concomitant]
     Active Substance: TORSEMIDE
     Indication: HYPERKALAEMIA
     Route: 048
     Dates: start: 2007
  12. CITALOPRAM [Concomitant]
     Active Substance: CITALOPRAM HYDROBROMIDE
     Indication: DEPRESSION
     Route: 048
     Dates: start: 2008
  13. CALCET [Concomitant]
     Indication: HYPERPHOSPHATAEMIA
     Route: 048
     Dates: start: 2010
  14. BISOPROLOL [Concomitant]
     Active Substance: BISOPROLOL
     Indication: HYPERTENSION
     Route: 048
     Dates: start: 2005

REACTIONS (1)
  - Cholangiocarcinoma [Not Recovered/Not Resolved]

NARRATIVE: CASE EVENT DATE: 20151102
